FAERS Safety Report 12873146 (Version 2)
Quarter: 2017Q1

REPORT INFORMATION
  Report Type: Spontaneous
  Country: FR (occurrence: FR)
  Receive Date: 20161021
  Receipt Date: 20170103
  Transmission Date: 20170428
  Serious: Yes (Other)
  Sender: FDA-Public Use
  Company Number: FR-JNJFOC-20161016984

PATIENT

DRUGS (1)
  1. METHYLPHENIDATE HYDROCHLORIDE. [Suspect]
     Active Substance: METHYLPHENIDATE HYDROCHLORIDE
     Indication: PRODUCT USED FOR UNKNOWN INDICATION
     Route: 065

REACTIONS (17)
  - Bradycardia [Unknown]
  - Subcutaneous abscess [Unknown]
  - Drug abuse [Unknown]
  - Injection site inflammation [Unknown]
  - Product use issue [Unknown]
  - Confusional state [Unknown]
  - Aggression [Unknown]
  - Agitation [Unknown]
  - Drug dependence [Unknown]
  - Intentional product misuse [Unknown]
  - Delusion [Unknown]
  - Myocardial infarction [Unknown]
  - Chest pain [Unknown]
  - Cardiac failure [Unknown]
  - Malaise [Unknown]
  - Off label use [Unknown]
  - Injection site infection [Unknown]
